FAERS Safety Report 23597962 (Version 6)
Quarter: 2025Q1

REPORT INFORMATION
  Report Type: Report from Study
  Country: US (occurrence: US)
  Receive Date: 20240305
  Receipt Date: 20250225
  Transmission Date: 20250408
  Serious: Yes (Other)
  Sender: DAIICHI
  Company Number: US-DAIICHI SANKYO, INC.-DSU-2024-109537AA

PATIENT
  Age: 39 Year
  Sex: Female
  Weight: 74.376 kg

DRUGS (21)
  1. PEXIDARTINIB [Suspect]
     Active Substance: PEXIDARTINIB
     Indication: Connective tissue neoplasm
     Dosage: 250 MG, BID, (125 MG 2 CAPSULES TWICE DAILY)
     Route: 048
     Dates: start: 20240222, end: 20240322
  2. PEXIDARTINIB [Suspect]
     Active Substance: PEXIDARTINIB
     Indication: Soft tissue neoplasm
  3. ACETAMINOPHEN [Concomitant]
     Active Substance: ACETAMINOPHEN
     Indication: Pain
     Route: 048
  4. ACETAMINOPHEN [Concomitant]
     Active Substance: ACETAMINOPHEN
     Route: 048
  5. GABAPENTIN [Concomitant]
     Active Substance: GABAPENTIN
     Indication: Product used for unknown indication
     Dosage: 800 MG, TID
     Route: 048
  6. IBUPROFEN [Concomitant]
     Active Substance: IBUPROFEN
     Indication: Product used for unknown indication
     Route: 048
  7. LEVOFLOXACIN [Concomitant]
     Active Substance: LEVOFLOXACIN
     Indication: Product used for unknown indication
     Route: 048
  8. LORAZEPAM [Concomitant]
     Active Substance: LORAZEPAM
     Indication: Product used for unknown indication
     Route: 048
  9. LOSARTAN [Concomitant]
     Active Substance: LOSARTAN
     Indication: Product used for unknown indication
     Route: 048
  10. OXYCODONE [Concomitant]
     Active Substance: OXYCODONE
     Indication: Product used for unknown indication
     Route: 048
  11. POLYETHYLENE GLYCOL ELECTROLYTE POWDER(I) [Concomitant]
     Indication: Product used for unknown indication
     Route: 048
  12. PROMETHEGAN [Concomitant]
     Active Substance: PROMETHAZINE HYDROCHLORIDE
     Indication: Nausea
     Route: 054
  13. HYDROXYZINE HYDROCHLORIDE [Concomitant]
     Active Substance: HYDROXYZINE HYDROCHLORIDE
     Indication: Product used for unknown indication
     Route: 048
  14. LEVOTHYROXINE [Concomitant]
     Active Substance: LEVOTHYROXINE
     Indication: Product used for unknown indication
     Dosage: 150 UG, QD
     Route: 048
  15. LORATADINE [Concomitant]
     Active Substance: LORATADINE
     Indication: Pruritus
     Route: 048
  16. DIPHENHYDRAMINE [Concomitant]
     Active Substance: DIPHENHYDRAMINE
     Indication: Urticaria
     Route: 048
  17. DIAZEPAM [Concomitant]
     Active Substance: DIAZEPAM
     Indication: Product used for unknown indication
     Route: 048
  18. DULOXETINE [Concomitant]
     Active Substance: DULOXETINE
     Indication: Product used for unknown indication
     Route: 048
  19. ONDANSETRON [Concomitant]
     Active Substance: ONDANSETRON
     Indication: Product used for unknown indication
     Route: 065
  20. PROCHLORPERAZINE [Concomitant]
     Active Substance: PROCHLORPERAZINE
     Indication: Product used for unknown indication
     Route: 065
  21. TYLENOL [Concomitant]
     Active Substance: ACETAMINOPHEN
     Indication: Product used for unknown indication
     Route: 065

REACTIONS (20)
  - Hepatic failure [Recovered/Resolved]
  - Gamma-glutamyltransferase increased [Recovered/Resolved]
  - Alanine aminotransferase increased [Recovered/Resolved]
  - Blood alkaline phosphatase increased [Recovered/Resolved]
  - Arthralgia [Recovered/Resolved]
  - Anxiety [Recovered/Resolved]
  - Hypophagia [Recovered/Resolved]
  - Taste disorder [Recovered/Resolved]
  - Laboratory test abnormal [Recovered/Resolved]
  - Pain [Recovered/Resolved]
  - Dehydration [Recovered/Resolved]
  - Hepatic function abnormal [Not Recovered/Not Resolved]
  - Hepatotoxicity [Recovered/Resolved]
  - Urticaria [Recovering/Resolving]
  - Gamma-glutamyltransferase increased [Unknown]
  - Nausea [Recovered/Resolved]
  - Vomiting [Recovered/Resolved]
  - Liver function test abnormal [Recovered/Resolved]
  - Aspartate aminotransferase increased [Recovered/Resolved]
  - Product dose omission issue [Recovered/Resolved]

NARRATIVE: CASE EVENT DATE: 20240310
